FAERS Safety Report 8399408-1 (Version None)
Quarter: 2012Q2

REPORT INFORMATION
  Report Type: 
  Country: None (occurrence: None)
  Receive Date: 20120323
  Receipt Date: 20110329
  Transmission Date: 20120825
  Serious: Yes (Death, Hospitalization)
  Sender: FDA-Public Use
  Company Number: 163-21880-11020687

PATIENT
  Age: 63 Year
  Sex: Male
  Weight: 61.2356 kg

DRUGS (13)
  1. MORPHINE [Concomitant]
  2. EXAMETHASONE (DEXAMETHASONE) [Concomitant]
  3. NEURONTIN [Concomitant]
  4. POTASSIUM CHLORIDE [Concomitant]
  5. REVLIMID [Suspect]
     Indication: MULTIPLE MYELOMA
     Dosage: 25 MG, 21/7, PO
     Route: 048
     Dates: start: 20110129
  6. REVLIMID [Suspect]
     Indication: MULTIPLE MYELOMA
     Dosage: 25 MG, 21/7, PO
     Route: 048
     Dates: start: 20110110, end: 20110101
  7. HCTZ (HYDROCHLORITHIAZIDE) [Concomitant]
  8. MS CONTIN [Concomitant]
  9. VALSARTAN [Concomitant]
  10. LOVENOX [Concomitant]
  11. LORTAB [Concomitant]
  12. VERPAMIL (VERAPAMIL) [Concomitant]
  13. COUMADIN [Concomitant]

REACTIONS (2)
  - PULMONARY EMBOLISM [None]
  - DEEP VEIN THROMBOSIS [None]
